FAERS Safety Report 5424337-2 (Version None)
Quarter: 2007Q3

REPORT INFORMATION
  Report Type: 
  Country: None (occurrence: None)
  Receive Date: 20070823
  Receipt Date: 20070818
  Transmission Date: 20080115
  Serious: Yes (Other)
  Sender: FDA-Public Use
  Company Number: US-PFIZER INC-2007068901

PATIENT
  Sex: Male
  Weight: 90.7 kg

DRUGS (4)
  1. LIPITOR [Suspect]
     Indication: BLOOD CHOLESTEROL
     Dosage: FREQ:EVERYDAY
     Route: 048
  2. LIPITOR [Suspect]
     Indication: RENAL DISORDER
  3. SULFASALAZINE [Suspect]
     Indication: COLITIS ULCERATIVE
  4. PRAVACHOL [Suspect]
     Indication: BLOOD CHOLESTEROL

REACTIONS (3)
  - BLOOD CHOLESTEROL [None]
  - MYALGIA [None]
  - RENAL DISORDER [None]
